FAERS Safety Report 9323655 (Version 2)
Quarter: 2013Q2

REPORT INFORMATION
  Report Type: Report from Study
  Country: US (occurrence: US)
  Receive Date: 20130603
  Receipt Date: 20130621
  Transmission Date: 20140414
  Serious: Yes (Other)
  Sender: FDA-Public Use
  Company Number: PHEH2013US011671

PATIENT
  Age: 52 Year
  Sex: Female
  Weight: 72.56 kg

DRUGS (4)
  1. GILENYA [Suspect]
     Indication: MULTIPLE SCLEROSIS
     Dosage: 0.5 MG, QD
     Route: 048
     Dates: start: 20130321, end: 20130523
  2. VITAMIN D [Concomitant]
     Dosage: 5000 IU, QD
     Route: 048
  3. VITAMIN C [Concomitant]
     Dosage: 500 MG, QD
     Route: 048
  4. LEXAPRO [Concomitant]
     Dosage: 20 MG, QD
     Route: 048

REACTIONS (6)
  - Blood pressure decreased [Recovered/Resolved]
  - Feeling abnormal [Not Recovered/Not Resolved]
  - Confusional state [Not Recovered/Not Resolved]
  - Frustration [Not Recovered/Not Resolved]
  - Fatigue [Not Recovered/Not Resolved]
  - Heart rate decreased [Unknown]
